FAERS Safety Report 6636119-4 (Version None)
Quarter: 2010Q1

REPORT INFORMATION
  Report Type: 
  Country: None (occurrence: None)
  Receive Date: 20100316
  Receipt Date: 20100311
  Transmission Date: 20100710
  Serious: Yes (Death)
  Sender: FDA-Public Use
  Company Number: FR-SANOFI-AVENTIS-2010SA013861

PATIENT
  Age: 64 Year
  Sex: Male

DRUGS (4)
  1. TAXOTERE [Suspect]
     Route: 041
     Dates: start: 20091224, end: 20091224
  2. CORDARONE [Suspect]
     Indication: PERICARDIAL EFFUSION
     Route: 048
     Dates: start: 20091209, end: 20091209
  3. CORDARONE [Suspect]
     Route: 048
     Dates: start: 20091210, end: 20100115
  4. CARDENSIEL [Suspect]
     Indication: PERICARDIAL EFFUSION
     Route: 048
     Dates: start: 20091209, end: 20100118

REACTIONS (3)
  - INTERSTITIAL LUNG DISEASE [None]
  - PERICARDITIS [None]
  - PULMONARY EMBOLISM [None]
